FAERS Safety Report 6826292-7 (Version None)
Quarter: 2010Q3

REPORT INFORMATION
  Report Type: 
  Country: None (occurrence: None)
  Receive Date: 20100709
  Receipt Date: 20100628
  Transmission Date: 20110219
  Serious: Yes (Other)
  Sender: FDA-Public Use
  Company Number: JP-PFIZER INC-2010080491

PATIENT
  Age: 82 Year
  Sex: Male

DRUGS (6)
  1. LYRICA [Suspect]
     Indication: TRIGEMINAL NEURALGIA
     Dosage: 150 MG/DAY
     Route: 048
     Dates: start: 20100626, end: 20100627
  2. DETRUSITOL [Concomitant]
     Dosage: UNK
     Route: 048
  3. SERMION [Concomitant]
     Dosage: UNK
  4. BLOPRESS [Concomitant]
     Dosage: UNK
     Route: 048
  5. PANALDINE [Concomitant]
     Dosage: UNK
     Route: 048
  6. LENDORMIN [Concomitant]
     Dosage: UNK
     Route: 048

REACTIONS (1)
  - HYPERSOMNIA [None]
